FAERS Safety Report 4393092-X (Version None)
Quarter: 2004Q3

REPORT INFORMATION
  Report Type: 
  Country: None (occurrence: None)
  Receive Date: 20040702
  Receipt Date: 20040408
  Transmission Date: 20050211
  Serious: Yes (Other)
  Sender: FDA-Public Use
  Company Number: 2004UW07134

PATIENT
  Age: 71 Year
  Sex: Female
  Weight: 108.8633 kg

DRUGS (9)
  1. CRESTOR [Suspect]
     Indication: BLOOD CHOLESTEROL INCREASED
     Dosage: 10 MG QD PO
     Route: 048
     Dates: start: 20040301
  2. COUMADIN [Concomitant]
  3. CLARITIN [Concomitant]
  4. SINGULAIR            ^DIECKMANN^ [Concomitant]
  5. ADVAIR DISKUS 100/50 [Concomitant]
  6. ALBUTEROL [Concomitant]
  7. PROZAC [Concomitant]
  8. DARVOCET-N 100 [Concomitant]
  9. VICODIN [Concomitant]

REACTIONS (3)
  - CONSTIPATION [None]
  - FATIGUE [None]
  - SOMNOLENCE [None]
